FAERS Safety Report 6985788-8 (Version None)
Quarter: 2010Q3

REPORT INFORMATION
  Report Type: 
  Country: None (occurrence: None)
  Receive Date: 20100915
  Receipt Date: 20100812
  Transmission Date: 20110219
  Serious: No
  Sender: FDA-Public Use
  Company Number: US-BAYER-201019882BCC

PATIENT
  Age: 74 Year
  Sex: Female
  Weight: 57 kg

DRUGS (6)
  1. ALEVE (CAPLET) [Suspect]
     Indication: ARTHRALGIA
     Dosage: TOTAL DAILY DOSE: 440 MG  UNIT DOSE: 220 MG
     Route: 048
     Dates: start: 20100810
  2. SYNTHROID [Concomitant]
     Route: 065
  3. AMBIEN [Concomitant]
     Route: 065
  4. HYDROCHLOROTHIAZIDE [Concomitant]
     Route: 065
  5. BLOOD PRESSURE MEDICATION [Concomitant]
     Route: 065
  6. CHOLESTEROL MEDICATION [Concomitant]
     Route: 065

REACTIONS (1)
  - ARTHRALGIA [None]
